FAERS Safety Report 24818507 (Version 1)
Quarter: 2025Q1

REPORT INFORMATION
  Report Type: Spontaneous
  Country: US (occurrence: None)
  Receive Date: 20250107
  Receipt Date: 20250107
  Transmission Date: 20250409
  Serious: Yes (Hospitalization)
  Sender: FDA-CTU
  Company Number: None

PATIENT
  Sex: Female

DRUGS (10)
  1. ENVARSUS XR [Suspect]
     Active Substance: TACROLIMUS
     Indication: Renal transplant
     Dosage: FREQUENCY : DAILY;?
     Dates: start: 20210414
  2. ASPIRIN LOW TAB 81 MG EC [Concomitant]
  3. COREG TAB 6.25MG [Concomitant]
  4. FAMOTIDINE [Concomitant]
     Active Substance: FAMOTIDINE
  5. FERROUS SULF TAB 325MG [Concomitant]
  6. ISOSORB MONO TAB 30MG ER [Concomitant]
  7. MYCOPHENOLIC ACID [Concomitant]
     Active Substance: MYCOPHENOLIC ACID
  8. SYNTHROID TAB 88MCG [Concomitant]
  9. TRADJENTA TAB5MG [Concomitant]
  10. VITAMIN D3 [Concomitant]
     Active Substance: CHOLECALCIFEROL

REACTIONS (1)
  - Spinal operation [None]
